FAERS Safety Report 21677528 (Version 1)
Quarter: 2022Q4

REPORT INFORMATION
  Report Type: Spontaneous
  Country: ES (occurrence: ES)
  Receive Date: 20221203
  Receipt Date: 20221203
  Transmission Date: 20230112
  Serious: Yes (Hospitalization)
  Sender: FDA-Public Use
  Company Number: None

PATIENT
  Age: 76 Year
  Sex: Female

DRUGS (6)
  1. BISOPROLOL [Suspect]
     Active Substance: BISOPROLOL
     Indication: Atrial fibrillation
     Dosage: 1.25 MG, C/24 H
     Route: 048
     Dates: start: 20200923, end: 20220511
  2. OMEPRAZOLE [Concomitant]
     Active Substance: OMEPRAZOLE
     Indication: Atrial fibrillation
     Dosage: 20 MG, A-DE
     Route: 048
     Dates: start: 20110604
  3. CHOLECALCIFEROL [Concomitant]
     Active Substance: CHOLECALCIFEROL
     Indication: Vitamin D deficiency
     Dosage: 25.000 IU, C/30 DIAS
     Route: 048
     Dates: start: 20190124
  4. LORMETAZEPAM [Concomitant]
     Active Substance: LORMETAZEPAM
     Indication: Tachycardia
     Dosage: 1 MG, C/24 H NOC
     Route: 048
     Dates: start: 20200616
  5. ACETAMINOPHEN [Concomitant]
     Active Substance: ACETAMINOPHEN
     Indication: Atrial fibrillation
     Dosage: 1 G, DECOCE
     Route: 048
     Dates: start: 20200908
  6. ATORVASTATIN CALCIUM [Concomitant]
     Active Substance: ATORVASTATIN CALCIUM
     Indication: Hyperlipidaemia
     Dosage: 10 MG, CE
     Route: 048
     Dates: start: 20161222

REACTIONS (3)
  - Bradycardia [Recovered/Resolved]
  - Dizziness [Recovered/Resolved]
  - Overdose [Recovered/Resolved]

NARRATIVE: CASE EVENT DATE: 20220511
